FAERS Safety Report 7470849-X (Version None)
Quarter: 2011Q2

REPORT INFORMATION
  Report Type: 
  Country: None (occurrence: None)
  Receive Date: 20110510
  Receipt Date: 20110426
  Transmission Date: 20111010
  Serious: Yes (Other)
  Sender: FDA-Public Use
  Company Number: DE-JNJFOC-20110412300

PATIENT

DRUGS (1)
  1. REMICADE [Suspect]
     Indication: AUTOIMMUNE HEPATITIS
     Route: 042

REACTIONS (2)
  - HERPES SIMPLEX OPHTHALMIC [None]
  - OFF LABEL USE [None]
